FAERS Safety Report 5608105-4 (Version None)
Quarter: 2008Q1

REPORT INFORMATION
  Report Type: 
  Country: None (occurrence: None)
  Receive Date: 20080130
  Receipt Date: 20080119
  Transmission Date: 20080703
  Serious: Yes (Other)
  Sender: FDA-Public Use
  Company Number: ES-JNJFOC-20080105720

PATIENT
  Sex: Female

DRUGS (2)
  1. REMINYL [Suspect]
     Indication: DEMENTIA
     Route: 048
  2. REMINYL ER [Suspect]
     Indication: DEMENTIA
     Route: 048

REACTIONS (4)
  - BLOOD PRESSURE DECREASED [None]
  - DRUG ADMINISTRATION ERROR [None]
  - DRUG DISPENSING ERROR [None]
  - VOMITING [None]
